FAERS Safety Report 8474878-9 (Version None)
Quarter: 2012Q2

REPORT INFORMATION
  Report Type: 
  Country: None (occurrence: None)
  Receive Date: 20120628
  Receipt Date: 20120626
  Transmission Date: 20120825
  Serious: Yes (Death)
  Sender: FDA-Public Use
  Company Number: AU-B.I. PHARMACEUTICALS,INC./RIDGEFIELD-2012-AU-01156AU

PATIENT
  Sex: Male

DRUGS (17)
  1. METFORMIN HCL [Concomitant]
  2. IMDUR [Concomitant]
  3. PRADAXA [Suspect]
     Indication: ATRIAL FIBRILLATION
  4. BICOR [Concomitant]
  5. DIAMICRON [Concomitant]
  6. NITROGLYCERIN [Concomitant]
  7. ASPIRIN [Concomitant]
  8. MOBIC [Concomitant]
  9. PANAMAX [Concomitant]
  10. SIMVASTATIN [Concomitant]
  11. ALLOPURINOL [Concomitant]
  12. RAMIPRIL [Concomitant]
  13. PRADAXA [Suspect]
     Indication: CEREBROVASCULAR ACCIDENT PROPHYLAXIS
     Dosage: 220 MG
     Dates: start: 20110822
  14. NITRAZEPAM [Concomitant]
  15. IKOREL [Concomitant]
  16. ACETAMINOPHEN W/ CODEINE [Concomitant]
  17. TRAMADOL HYDROCHLORIDE [Concomitant]

REACTIONS (1)
  - CORONARY ARTERY DISEASE [None]
